FAERS Safety Report 5470412-6 (Version None)
Quarter: 2007Q3

REPORT INFORMATION
  Report Type: 
  Country: None (occurrence: None)
  Receive Date: 20070820
  Receipt Date: 20070426
  Transmission Date: 20080115
  Serious: No
  Sender: FDA-Public Use
  Company Number: WAES 0704USA06303

PATIENT
  Age: 82 Year
  Sex: Male

DRUGS (5)
  1. JANUVIA [Suspect]
     Indication: TYPE 2 DIABETES MELLITUS
     Dosage: 25 MG/DAILY/PO
     Route: 048
     Dates: start: 20061221
  2. AVAPRO [Concomitant]
  3. CARDIZEM [Concomitant]
  4. GLYNASE [Concomitant]
  5. INSULIN [Concomitant]

REACTIONS (1)
  - DECREASED APPETITE [None]
